FAERS Safety Report 6697580-2 (Version None)
Quarter: 2010Q2

REPORT INFORMATION
  Report Type: 
  Country: None (occurrence: None)
  Receive Date: 20100426
  Receipt Date: 20090723
  Transmission Date: 20101027
  Serious: No
  Sender: FDA-Public Use
  Company Number: US-ABBOTT-09P-163-0587732-00

PATIENT
  Sex: Female
  Weight: 94.432 kg

DRUGS (21)
  1. AZMACORT [Suspect]
     Indication: ASTHMA
     Dates: start: 19970101
  2. GARLIC [Concomitant]
     Indication: BLOOD CHOLESTEROL INCREASED
  3. CALCIUM WITH VITAMIN D [Concomitant]
     Indication: BONE DISORDER
  4. SENNA [Concomitant]
     Indication: CONSTIPATION
  5. COLACE [Concomitant]
     Indication: CONSTIPATION
  6. CLARITIN [Concomitant]
     Indication: HYPERSENSITIVITY
  7. ASPIRIN [Concomitant]
     Indication: CORONARY ARTERY BYPASS
  8. ASPIRIN [Concomitant]
     Indication: ANTICOAGULANT THERAPY
  9. ASPIRIN [Concomitant]
     Indication: CORONARY ARTERIAL STENT INSERTION
  10. ATENOLOL [Concomitant]
     Indication: HYPERTENSION
  11. AVAPRO [Concomitant]
     Indication: HYPERTENSION
  12. HYDROCHLOROTHIAZIDE [Concomitant]
     Indication: HYPERTENSION
  13. NASACORT [Concomitant]
     Indication: HYPERSENSITIVITY
  14. FISH OIL [Concomitant]
     Indication: BLOOD CHOLESTEROL INCREASED
  15. PROMISE SUPER SHOT [Concomitant]
     Indication: BLOOD CHOLESTEROL INCREASED
     Route: 048
  16. MAXAIR [Concomitant]
     Indication: HYPERSENSITIVITY
     Route: 055
  17. MULTI-VITAMIN [Concomitant]
     Indication: DRUG USE FOR UNKNOWN INDICATION
  18. ACIPHEX [Concomitant]
     Indication: GASTROOESOPHAGEAL REFLUX DISEASE
  19. CRESTOR [Concomitant]
     Indication: BLOOD CHOLESTEROL INCREASED
  20. LEVOTHROID [Concomitant]
     Indication: HYPOTHYROIDISM
     Dosage: 137 MCG 4 TIMES A WEEK, 150 MCG 3 TIMES A WEEK
  21. NITROGLYCERIN [Concomitant]
     Indication: CARDIAC DISORDER

REACTIONS (1)
  - BURNING SENSATION [None]
